FAERS Safety Report 6215457-3 (Version None)
Quarter: 2009Q2

REPORT INFORMATION
  Report Type: 
  Country: None (occurrence: None)
  Receive Date: 20090604
  Receipt Date: 20090521
  Transmission Date: 20091009
  Serious: Yes (Other)
  Sender: FDA-Public Use
  Company Number: FI-BAUSCH-2009BL002598

PATIENT
  Age: 9 Year
  Sex: Female

DRUGS (5)
  1. DEXAMETHASONE [Suspect]
     Indication: IRIDOCYCLITIS
     Route: 047
  2. METHOTREXATE [Concomitant]
     Indication: SYNOVITIS
     Route: 058
  3. INFLIXIMAB [Concomitant]
     Indication: SYNOVITIS
  4. ETANERCEPT [Concomitant]
  5. CYCLOSPORINE [Concomitant]
     Indication: EYE INFLAMMATION

REACTIONS (2)
  - ADRENAL INSUFFICIENCY [None]
  - DRUG TOXICITY [None]
